FAERS Safety Report 6344311-1 (Version None)
Quarter: 2009Q3

REPORT INFORMATION
  Report Type: 
  Country: None (occurrence: None)
  Receive Date: 20090821
  Receipt Date: 20090521
  Transmission Date: 20100115
  Serious: No
  Sender: FDA-Public Use
  Company Number: 8045240

PATIENT
  Age: 57 Year
  Sex: Female
  Weight: 84.82 kg

DRUGS (6)
  1. CIMZIA [Suspect]
     Indication: CROHN'S DISEASE
     Dosage: 400 MG SC
     Route: 058
     Dates: start: 20081201
  2. ZIAC [Concomitant]
  3. SIMVASTATIN [Concomitant]
  4. ASPIRIN [Concomitant]
  5. LUMIGAN [Concomitant]
  6. INEXIUM [Concomitant]

REACTIONS (3)
  - FEELING ABNORMAL [None]
  - HYPERTENSION [None]
  - INJECTION SITE DISCOLOURATION [None]
